FAERS Safety Report 21069722 (Version 1)
Quarter: 2022Q3

REPORT INFORMATION
  Report Type: Spontaneous
  Country: US (occurrence: US)
  Receive Date: 20220712
  Receipt Date: 20220712
  Transmission Date: 20221026
  Serious: No
  Sender: FDA-Public Use
  Company Number: US-ASTELLAS-2021US028080

PATIENT
  Age: 81 Year
  Sex: Male

DRUGS (1)
  1. MYRBETRIQ [Suspect]
     Active Substance: MIRABEGRON
     Indication: Hypertonic bladder
     Dosage: 25 MG, ONCE DAILY (HE TOOK THE MEDICATION FOR 22 DAYS)
     Route: 048
     Dates: start: 202107, end: 202107

REACTIONS (6)
  - Hypertonic bladder [Recovering/Resolving]
  - Condition aggravated [Recovering/Resolving]
  - Dry mouth [Not Recovered/Not Resolved]
  - Constipation [Not Recovered/Not Resolved]
  - Dizziness [Not Recovered/Not Resolved]
  - Headache [Recovered/Resolved]

NARRATIVE: CASE EVENT DATE: 20210701
